FAERS Safety Report 8029471 (Version 7)
Quarter: 2014Q3

REPORT INFORMATION
  Report Type: Report from Study
  Country: FR (occurrence: FR)
  Receive Date: 20110711
  Receipt Date: 20140728
  Transmission Date: 20150326
  Serious: Yes (Hospitalization, Other)
  Sender: FDA-Public Use
  Company Number: FR-VERTEX PHARMACEUTICALS INC.-AE-2011-000300

PATIENT
  Age: 58 Year
  Sex: Female
  Weight: 91 kg

DRUGS (13)
  1. DIPROSONE [Concomitant]
     Active Substance: BETAMETHASONE DIPROPIONATE
     Indication: RASH
     Dosage: 1 DF, BID
     Route: 065
     Dates: start: 20110313
  2. LOGROTON [Concomitant]
     Dosage: HALF A TABLET A DAY
     Route: 048
  3. GLYCEROL\PARAFFIN [Concomitant]
     Active Substance: GLYCERIN\PARAFFIN
     Indication: DRY SKIN PROPHYLAXIS
     Dosage: 1 DF, QD
     Route: 003
     Dates: start: 20110221
  4. PEGASYS [Suspect]
     Active Substance: PEGINTERFERON ALFA-2A
     Indication: HEPATITIS C
     Dosage: 180 ?G, QW
     Route: 058
     Dates: start: 20110221
  5. TOCO [Concomitant]
     Active Substance: UNSPECIFIED INGREDIENT
     Indication: INSULIN RESISTANCE
     Dosage: 520 IU, BID
     Route: 048
     Dates: start: 20090913
  6. GLYCEROL\PARAFFIN [Concomitant]
     Active Substance: GLYCERIN\PARAFFIN
     Indication: RASH
  7. COPEGUS [Suspect]
     Active Substance: RIBAVIRIN
     Dosage: 1000 MG, QD
     Route: 003
  8. VX-950 (TELAPREVIR) [Suspect]
     Active Substance: TELAPREVIR
     Indication: HEPATITIS C
     Dosage: 750 MG, TID
     Route: 048
     Dates: start: 20110221, end: 20110513
  9. PEGASYS [Suspect]
     Active Substance: PEGINTERFERON ALFA-2A
     Dosage: 185 ?G, QW
     Route: 058
  10. COPEGUS [Suspect]
     Active Substance: RIBAVIRIN
     Indication: HEPATITIS C
     Dosage: 1200 MG, QD
     Route: 003
     Dates: start: 20110221
  11. LOGROTON [Concomitant]
     Indication: HYPERTENSION
     Dosage: 1 DF, QD
     Route: 048
     Dates: start: 20080218
  12. NEORECORMON [Concomitant]
     Active Substance: ERYTHROPOIETIN
     Dosage: 30000 IU, UNK
     Route: 065
  13. NEORECORMON [Concomitant]
     Active Substance: ERYTHROPOIETIN
     Indication: ANAEMIA
     Dosage: 30000 IU, QW
     Route: 065
     Dates: start: 20110419

REACTIONS (7)
  - Gastrointestinal motility disorder [Unknown]
  - Anaemia [Recovered/Resolved]
  - Toxic skin eruption [Recovered/Resolved]
  - Asthenia [Recovered/Resolved]
  - Drug reaction with eosinophilia and systemic symptoms [Recovering/Resolving]
  - Pancytopenia [Unknown]
  - Hypokalaemia [Unknown]

NARRATIVE: CASE EVENT DATE: 20110321
